FAERS Safety Report 6505974-0 (Version None)
Quarter: 2009Q4

REPORT INFORMATION
  Report Type: 
  Country: None (occurrence: None)
  Receive Date: 20091201
  Receipt Date: 20090723
  Transmission Date: 20100525
  Serious: Yes (Other)
  Sender: FDA-Public Use
  Company Number: 2008-186350-NL

PATIENT
  Age: 36 Year
  Sex: Female
  Weight: 81.6 kg

DRUGS (6)
  1. NUVARING [Suspect]
     Indication: DYSMENORRHOEA
     Dosage: 1 DF;
     Dates: start: 20060501, end: 20060525
  2. IBUPROFEN [Concomitant]
  3. LEXAPRO [Concomitant]
  4. LORAZEPAM [Concomitant]
  5. ALBUTEROL [Concomitant]
  6. NEXIUM [Concomitant]

REACTIONS (2)
  - DEEP VEIN THROMBOSIS [None]
  - OFF LABEL USE [None]
